FAERS Safety Report 9101331 (Version 1)
Quarter: 2013Q1

REPORT INFORMATION
  Report Type: Spontaneous
  Country: PL (occurrence: PL)
  Receive Date: 20130215
  Receipt Date: 20130215
  Transmission Date: 20140127
  Serious: No
  Sender: FDA-Public Use
  Company Number: PL-PFIZER INC-2013046484

PATIENT
  Sex: Female

DRUGS (7)
  1. XALATAN [Suspect]
     Dosage: UNK, TO BOTH EYES IN THE EVENINGS
  2. BETALOC [Concomitant]
     Indication: HYPERTENSION
     Dosage: UNK
  3. BETALOC [Concomitant]
     Indication: CIRCULATORY COLLAPSE
  4. EFFOX [Concomitant]
     Indication: HYPERTENSION
     Dosage: UNK
  5. EFFOX [Concomitant]
     Indication: CIRCULATORY COLLAPSE
  6. NITROGLYCERIN [Concomitant]
     Indication: HYPERTENSION
  7. NITROGLYCERIN [Concomitant]
     Indication: CIRCULATORY COLLAPSE

REACTIONS (2)
  - Pain in jaw [Recovered/Resolved]
  - Insomnia [Unknown]
